FAERS Safety Report 9034511 (Version 1)
Quarter: 2012Q4

REPORT INFORMATION
  Report Type: Spontaneous
  Country: US (occurrence: None)
  Receive Date: 20121219
  Receipt Date: 20121219
  Transmission Date: 20130627
  Serious: Yes (Hospitalization, Other)
  Sender: FDA-Public Use
  Company Number: 2012PROUSA02325

PATIENT
  Age: 69 Year
  Sex: Male
  Weight: 96.6 kg

DRUGS (1)
  1. PROVENGE [Suspect]
     Indication: PROSTATE CANCER METASTATIC
     Route: 042
     Dates: start: 20121102, end: 20121102

REACTIONS (9)
  - Fall [None]
  - Arthralgia [None]
  - Device related infection [None]
  - Enterococcal sepsis [None]
  - Prostate cancer metastatic [None]
  - Malignant neoplasm progression [None]
  - Blood pressure increased [None]
  - Intervertebral disc disorder [None]
  - Metastases to spine [None]
